FAERS Safety Report 5196195-5 (Version None)
Quarter: 2006Q4

REPORT INFORMATION
  Report Type: 
  Country: None (occurrence: None)
  Receive Date: 20061222
  Receipt Date: 20061212
  Transmission Date: 20070319
  Serious: Yes (Hospitalization)
  Sender: FDA-Public Use
  Company Number: 340002M06GBR

PATIENT
  Sex: Female

DRUGS (1)
  1. OVIDREL [Suspect]
     Indication: OVULATION INDUCTION

REACTIONS (2)
  - FEELING ABNORMAL [None]
  - NON-CARDIAC CHEST PAIN [None]
